FAERS Safety Report 23416466 (Version 1)
Quarter: 2024Q1

REPORT INFORMATION
  Report Type: Spontaneous
  Country: US (occurrence: None)
  Receive Date: 20240117
  Receipt Date: 20240117
  Transmission Date: 20240410
  Serious: Yes (Hospitalization)
  Sender: FDA-Public Use
  Company Number: None

PATIENT
  Age: 16 Year
  Sex: Female
  Weight: 81.9 kg

DRUGS (2)
  1. TZIELD [Suspect]
     Active Substance: TEPLIZUMAB-MZWV
     Indication: Type 1 diabetes mellitus
     Dosage: OTHER FREQUENCY : ONCE;?
     Route: 041
     Dates: start: 20240108, end: 20240109
  2. HUMALOG [Concomitant]
     Active Substance: INSULIN LISPRO

REACTIONS (5)
  - Vomiting [None]
  - Hypotension [None]
  - Dizziness [None]
  - Back pain [None]
  - Sepsis [None]

NARRATIVE: CASE EVENT DATE: 20240109
